FAERS Safety Report 14723846 (Version 2)
Quarter: 2018Q2

REPORT INFORMATION
  Report Type: Report from Study
  Country: KR (occurrence: KR)
  Receive Date: 20180405
  Receipt Date: 20180529
  Transmission Date: 20180711
  Serious: Yes (Death, Hospitalization)
  Sender: FDA-Public Use
  Company Number: KR-EISAI MEDICAL RESEARCH-EC-2018-037744

PATIENT
  Age: 42 Year
  Sex: Female
  Weight: 55.7 kg

DRUGS (12)
  1. HALAVEN [Suspect]
     Active Substance: ERIBULIN MESYLATE
     Route: 041
     Dates: start: 20160715, end: 20170118
  2. ALLEGRA [Concomitant]
     Active Substance: FEXOFENADINE HYDROCHLORIDE
  3. XYZAL [Concomitant]
     Active Substance: LEVOCETIRIZINE DIHYDROCHLORIDE
  4. URSA [Concomitant]
     Active Substance: URSODIOL
  5. HALAVEN [Suspect]
     Active Substance: ERIBULIN MESYLATE
     Route: 041
     Dates: start: 20160630, end: 20160630
  6. PENNEL CAP [Concomitant]
  7. UDEX [Concomitant]
  8. HALAVEN [Suspect]
     Active Substance: ERIBULIN MESYLATE
     Indication: BREAST CANCER METASTATIC
     Route: 041
     Dates: start: 20160620, end: 20160620
  9. GASMOTIN [Concomitant]
     Active Substance: MOSAPRIDE CITRATE
  10. LASIX [Concomitant]
     Active Substance: FUROSEMIDE
  11. STILLEN [Concomitant]
  12. DIOGEL [Concomitant]

REACTIONS (3)
  - Diarrhoea [Recovered/Resolved]
  - Febrile neutropenia [Recovered/Resolved]
  - Malignant neoplasm progression [Fatal]

NARRATIVE: CASE EVENT DATE: 20160622
